FAERS Safety Report 7611840-X (Version None)
Quarter: 2011Q3

REPORT INFORMATION
  Report Type: 
  Country: None (occurrence: None)
  Receive Date: 20110715
  Receipt Date: 20110707
  Transmission Date: 20111222
  Serious: Yes (Hospitalization)
  Sender: FDA-Public Use
  Company Number: US-US-EMD SERONO, INC.-7060886

PATIENT
  Sex: Female

DRUGS (9)
  1. REBIF [Suspect]
     Route: 058
     Dates: end: 20110601
  2. UNSPECIFIED PAIN MEDICATION [Concomitant]
     Indication: BACK PAIN
  3. UNSPECIFIED PAIN MEDICATION [Concomitant]
     Indication: PAIN IN EXTREMITY
  4. ZOLOFT [Concomitant]
  5. REBIF [Suspect]
     Route: 058
  6. REBIF [Suspect]
     Indication: PRODUCT USED FOR UNKNOWN INDICATION
     Route: 058
     Dates: start: 20110509
  7. FERROUS SULFATE TAB [Concomitant]
  8. CIPROFLOXACIN HCL [Concomitant]
  9. COUMADIN [Concomitant]
     Dates: end: 20110601

REACTIONS (10)
  - INJECTION SITE PRURITUS [None]
  - HAEMOGLOBIN DECREASED [None]
  - SKIN ULCER [None]
  - EMOTIONAL DISTRESS [None]
  - INJECTION SITE ERYTHEMA [None]
  - INJECTION SITE HAEMATOMA [None]
  - INTERNATIONAL NORMALISED RATIO INCREASED [None]
  - CONTUSION [None]
  - DIARRHOEA [None]
  - DIVERTICULUM [None]
